FAERS Safety Report 4485210-X (Version None)
Quarter: 2004Q4

REPORT INFORMATION
  Report Type: 
  Country: None (occurrence: None)
  Receive Date: 20041026
  Receipt Date: 20040520
  Transmission Date: 20050328
  Serious: No
  Sender: FDA-Public Use
  Company Number: US-BRISTOL-MYERS SQUIBB COMPANY-12592416

PATIENT
  Age: 58 Year
  Sex: Male
  Weight: 69 kg

DRUGS (1)
  1. GLUCOPHAGE XR [Suspect]
     Indication: DIABETES MELLITUS
     Route: 048

REACTIONS (2)
  - ABDOMINAL PAIN UPPER [None]
  - DYSPEPSIA [None]
